FAERS Safety Report 6393082-1 (Version None)
Quarter: 2009Q4

REPORT INFORMATION
  Report Type: 
  Country: None (occurrence: None)
  Receive Date: 20091008
  Receipt Date: 20091002
  Transmission Date: 20100525
  Serious: Yes (Death)
  Sender: FDA-Public Use
  Company Number: US-ROCHE-657312

PATIENT
  Sex: Female

DRUGS (2)
  1. VALGANCICLOVIR HCL [Suspect]
     Indication: DRUG USE FOR UNKNOWN INDICATION
     Route: 065
     Dates: start: 20080601
  2. MYCOPHENOLATE MOFETIL [Suspect]
     Indication: DRUG USE FOR UNKNOWN INDICATION
     Route: 065
     Dates: start: 20080601

REACTIONS (2)
  - PNEUMONIA [None]
  - RESPIRATORY FAILURE [None]
